FAERS Safety Report 7687437-2 (Version None)
Quarter: 2011Q3

REPORT INFORMATION
  Report Type: 
  Country: None (occurrence: None)
  Receive Date: 20110816
  Receipt Date: 20110720
  Transmission Date: 20111222
  Serious: Yes (Death, Life-Threatening, Other)
  Sender: FDA-Public Use
  Company Number: US-BAXTER-2010BH002352

PATIENT
  Age: 65 Year
  Sex: Male

DRUGS (7)
  1. METOPROLOL TARTRATE [Concomitant]
     Indication: PRODUCT USED FOR UNKNOWN INDICATION
     Route: 048
  2. ALLEGRA [Concomitant]
     Indication: PRODUCT USED FOR UNKNOWN INDICATION
     Route: 048
  3. ATORVASTATIN [Concomitant]
     Indication: PRODUCT USED FOR UNKNOWN INDICATION
     Route: 065
  4. HEPARIN SODIUM INJECTION [Suspect]
     Indication: PANCREATICODUODENECTOMY
     Route: 065
     Dates: start: 20080311
  5. HEPARIN SODIUM 5,000 UNITS IN DEXTROSE 5% [Suspect]
     Indication: THROMBOSIS PROPHYLAXIS
     Route: 042
     Dates: start: 20080316, end: 20080324
  6. ASPIRIN [Concomitant]
     Indication: PRODUCT USED FOR UNKNOWN INDICATION
     Route: 048
  7. LORATADINE [Concomitant]
     Indication: PRODUCT USED FOR UNKNOWN INDICATION
     Route: 048

REACTIONS (26)
  - ATRIAL FIBRILLATION [None]
  - POST PROCEDURAL BILE LEAK [None]
  - TOXIC EPIDERMAL NECROLYSIS [None]
  - DEPRESSION [None]
  - AGITATION [None]
  - PLEURAL EFFUSION [None]
  - RENAL FAILURE [None]
  - DIPLOPIA [None]
  - SEPTIC SHOCK [None]
  - COMA [None]
  - PNEUMONIA ASPIRATION [None]
  - ULCER HAEMORRHAGE [None]
  - DEEP VEIN THROMBOSIS [None]
  - COAGULOPATHY [None]
  - ESCHERICHIA BACTERAEMIA [None]
  - CONFUSIONAL STATE [None]
  - CARDIO-RESPIRATORY ARREST [None]
  - MULTI-ORGAN FAILURE [None]
  - RESPIRATORY FAILURE [None]
  - PANCREATIC CARCINOMA [None]
  - LYMPHOMA [None]
  - EMPYEMA [None]
  - ABDOMINAL SEPSIS [None]
  - RASH MACULO-PAPULAR [None]
  - PNEUMONIA KLEBSIELLA [None]
  - SUICIDAL IDEATION [None]
